FAERS Safety Report 9330746 (Version 1)
Quarter: 2013Q2

REPORT INFORMATION
  Report Type: Spontaneous
  Country: CN (occurrence: CN)
  Receive Date: 20130605
  Receipt Date: 20130605
  Transmission Date: 20140414
  Serious: Yes (Other)
  Sender: FDA-Public Use
  Company Number: CN-JNJFOC-20130517062

PATIENT
  Age: 52 Year
  Sex: Female

DRUGS (1)
  1. NIZORAL [Suspect]
     Indication: RASH PRURITIC
     Route: 048
     Dates: start: 20121014, end: 20121014

REACTIONS (9)
  - Cyanosis [Recovering/Resolving]
  - Hyperpyrexia [Recovered/Resolved]
  - Sinus congestion [Recovering/Resolving]
  - Chills [Recovering/Resolving]
  - Vomiting [Recovering/Resolving]
  - Dizziness [Recovering/Resolving]
  - Muscular weakness [Recovering/Resolving]
  - Pallor [Recovering/Resolving]
  - Underdose [Unknown]
